FAERS Safety Report 23977413 (Version 1)
Quarter: 2024Q2

REPORT INFORMATION
  Report Type: Spontaneous
  Country: US (occurrence: None)
  Receive Date: 20240614
  Receipt Date: 20240614
  Transmission Date: 20240716
  Serious: Yes (Hospitalization)
  Sender: FDA-Public Use
  Company Number: None

PATIENT
  Sex: Male

DRUGS (2)
  1. IMATINIB [Suspect]
     Active Substance: IMATINIB
     Indication: Acute graft versus host disease
     Dosage: 200 MG DAILY ORAL
     Route: 048
     Dates: start: 20240223
  2. REZUROCK [Suspect]
     Active Substance: BELUMOSUDIL

REACTIONS (4)
  - Pollakiuria [None]
  - Diarrhoea [None]
  - Muscle spasms [None]
  - Fatigue [None]
